FAERS Safety Report 8962605 (Version 1)
Quarter: 2012Q4

REPORT INFORMATION
  Report Type: Spontaneous
  Country: US (occurrence: None)
  Receive Date: 20121211
  Receipt Date: 20121211
  Transmission Date: 20130627
  Serious: No
  Sender: FDA-Public Use
  Company Number: None

PATIENT
  Age: 58 Year
  Sex: Male
  Weight: 141.8 kg

DRUGS (1)
  1. PEMETREXED [Suspect]
     Indication: CARCINOMA OF LUNG STAGE IV
     Route: 058
     Dates: start: 20121030, end: 20121126

REACTIONS (4)
  - Dizziness [None]
  - Hypertension [None]
  - Hypotension [None]
  - Flushing [None]
